FAERS Safety Report 4645039-6 (Version None)
Quarter: 2005Q2

REPORT INFORMATION
  Report Type: 
  Country: None (occurrence: None)
  Receive Date: 20050426
  Receipt Date: 20050330
  Transmission Date: 20051028
  Serious: Yes (Hospitalization)
  Sender: FDA-Public Use
  Company Number: MX-ROCHE-400044

PATIENT
  Age: 16 Year
  Sex: Male
  Weight: 58 kg

DRUGS (2)
  1. ROCEPHIN [Suspect]
     Route: 042
     Dates: start: 20050324, end: 20050325
  2. ROCEPHIN [Suspect]
     Route: 042
     Dates: start: 20050326, end: 20050327

REACTIONS (7)
  - DYSPHAGIA [None]
  - MONOCYTE COUNT INCREASED [None]
  - MOUTH ULCERATION [None]
  - MUCOUS MEMBRANE DISORDER [None]
  - ULCER [None]
  - VIRAL INFECTION [None]
  - VOMITING [None]
